FAERS Safety Report 7736665-6 (Version None)
Quarter: 2011Q3

REPORT INFORMATION
  Report Type: 
  Country: None (occurrence: None)
  Receive Date: 20110908
  Receipt Date: 20110829
  Transmission Date: 20111222
  Serious: Yes (Hospitalization)
  Sender: FDA-Public Use
  Company Number: US-JNJFOC-20110900406

PATIENT
  Age: 76 Year
  Sex: Male
  Weight: 74.03 kg

DRUGS (6)
  1. TEMSIROLIMUS [Suspect]
     Indication: MANTLE CELL LYMPHOMA
     Dosage: DAY 1, 8 AND 15
     Route: 065
     Dates: start: 20110420, end: 20110705
  2. ASPIRIN [Concomitant]
     Route: 065
  3. AMBIEN [Concomitant]
     Indication: SLEEP DISORDER THERAPY
     Route: 065
  4. CLADRIBINE [Suspect]
     Indication: MANTLE CELL LYMPHOMA
     Dosage: DAY 1, 2, 3, 4, 5
     Route: 065
     Dates: start: 20110420, end: 20110625
  5. RITUXIMAB [Suspect]
     Indication: MANTLE CELL LYMPHOMA
     Dosage: CYCLE 1 ONLY, DAYS 1 AND 2, THEN SUBSEQUENT CYCLES DAY 1
     Route: 065
     Dates: start: 20110420, end: 20110621
  6. BECONASE AQUA [Concomitant]
     Indication: SINUS CONGESTION
     Route: 065

REACTIONS (1)
  - PNEUMOCYSTIS JIROVECI PNEUMONIA [None]
